FAERS Safety Report 10670631 (Version 1)
Quarter: 2014Q4

REPORT INFORMATION
  Report Type: Spontaneous
  Country: US (occurrence: None)
  Receive Date: 20141208
  Receipt Date: 20141208
  Transmission Date: 20150529
  Serious: No
  Sender: FDA-Public Use
  Company Number: 2014TUS006420

PATIENT
  Age: 30 Year
  Sex: Male
  Weight: 219 kg

DRUGS (2)
  1. ADDERALL [Suspect]
     Active Substance: AMPHETAMINE ASPARTATE\AMPHETAMINE SULFATE\DEXTROAMPHETAMINE SACCHARATE\DEXTROAMPHETAMINE SULFATE
     Indication: ATTENTION DEFICIT/HYPERACTIVITY DISORDER
     Dosage: ONE TABLET IN AM, 1/2 TABLET IN PM
     Dates: end: 2011
  2. BRINTELLIX [Suspect]
     Active Substance: VORTIOXETINE HYDROBROMIDE
     Indication: DEPRESSION
     Route: 048
     Dates: start: 20140714, end: 20140714

REACTIONS (5)
  - Photosensitivity reaction [None]
  - Disorientation [None]
  - Headache [None]
  - Lethargy [None]
  - Vomiting [None]

NARRATIVE: CASE EVENT DATE: 20140714
